FAERS Safety Report 25945432 (Version 1)
Quarter: 2025Q4

REPORT INFORMATION
  Report Type: Spontaneous
  Country: US (occurrence: None)
  Receive Date: 20251021
  Receipt Date: 20251021
  Transmission Date: 20260118
  Serious: No
  Sender: FDA-CTU
  Company Number: None

PATIENT
  Age: 82 Year
  Sex: Female
  Weight: 56.25 kg

DRUGS (12)
  1. ATORVASTATIN [Suspect]
     Active Substance: ATORVASTATIN
     Dosage: OTHER QUANTITY : 1 TABLET(S);?
  2. TRAVOPROST [Concomitant]
     Active Substance: TRAVOPROST
  3. LYRICA [Concomitant]
     Active Substance: PREGABALIN
  4. INTRAROSA [Concomitant]
     Active Substance: PRASTERONE
  5. CELEBREX [Concomitant]
     Active Substance: CELECOXIB
  6. Ibuprofen prn [Concomitant]
  7. FAMOTIDINE [Concomitant]
     Active Substance: FAMOTIDINE
  8. VITAMIN D [Concomitant]
     Active Substance: VITAMIN D NOS
  9. VITAMIN B12 [Concomitant]
     Active Substance: CYANOCOBALAMIN
  10. LACTASE [Concomitant]
     Active Substance: LACTASE
  11. curcumin-phytosome [Concomitant]
  12. OTCH eye drops [Concomitant]

REACTIONS (8)
  - Dizziness [None]
  - Fatigue [None]
  - Asthenia [None]
  - Therapy cessation [None]
  - Blood cholesterol increased [None]
  - Rash erythematous [None]
  - Rash pruritic [None]
  - Therapy change [None]

NARRATIVE: CASE EVENT DATE: 20250608
